FAERS Safety Report 10240725 (Version 1)
Quarter: 2014Q2

REPORT INFORMATION
  Report Type: Spontaneous
  Country: GB (occurrence: GB)
  Receive Date: 20140617
  Receipt Date: 20140617
  Transmission Date: 20141212
  Serious: Yes (Other)
  Sender: FDA-Public Use
  Company Number: GB-MYLANLABS-2014S1013532

PATIENT
  Age: 48 Year
  Sex: Female

DRUGS (2)
  1. CARBOPLATIN [Suspect]
     Indication: OVARIAN ENDOMETRIOID CARCINOMA
     Dosage: 3-WEEKLY CARBOPLATIN AUC 6 (TOTAL DOSE 740MG)
     Route: 065
  2. PACLITAXEL [Suspect]
     Indication: OVARIAN ENDOMETRIOID CARCINOMA
     Dosage: WEEKLY PACLITAXEL 80MG/M2 (TOTAL DOSE 150MG)
     Route: 065

REACTIONS (4)
  - Papilloedema [Not Recovered/Not Resolved]
  - Optic atrophy [Unknown]
  - Type I hypersensitivity [Unknown]
  - Retinal haemorrhage [Unknown]
